FAERS Safety Report 15575127 (Version 1)
Quarter: 2018Q4

REPORT INFORMATION
  Report Type: Other
  Country: ES (occurrence: ES)
  Receive Date: 20181101
  Receipt Date: 20181101
  Transmission Date: 20190205
  Serious: Yes (Hospitalization, Other)
  Sender: FDA-Public Use
  Company Number: ES-APOTEX-2018AP023883

PATIENT
  Age: 48 Year
  Sex: Female

DRUGS (2)
  1. DOGMATIL [Suspect]
     Active Substance: SULPIRIDE
     Indication: VERTIGO
     Dosage: 50 MG, TID
     Route: 048
     Dates: start: 20180322, end: 20180409
  2. AMOXICILLIN, CLAVULANIC ACID [Suspect]
     Active Substance: AMOXICILLIN\CLAVULANIC ACID
     Indication: PRODUCT USED FOR UNKNOWN INDICATION
     Dosage: 1 DF, TID
     Route: 065
     Dates: start: 20180401, end: 20180403

REACTIONS (2)
  - Stevens-Johnson syndrome [Recovering/Resolving]
  - Hepatitis cholestatic [Recovering/Resolving]

NARRATIVE: CASE EVENT DATE: 20180403
